FAERS Safety Report 20221547 (Version 2)
Quarter: 2022Q1

REPORT INFORMATION
  Report Type: Report from Study
  Country: CN (occurrence: CN)
  Receive Date: 20211223
  Receipt Date: 20220203
  Transmission Date: 20220424
  Serious: Yes (Death, Other)
  Sender: FDA-Public Use
  Company Number: CN-ELI_LILLY_AND_COMPANY-CN202112008769

PATIENT
  Age: 67 Year
  Sex: Male

DRUGS (4)
  1. GEMCITABINE HYDROCHLORIDE [Suspect]
     Active Substance: GEMCITABINE HYDROCHLORIDE
     Indication: Pancreatic carcinoma
     Dosage: 1000 MG/M2, CYCLICAL, ON THE FIRST AND EIGHTH DAY TRIWEEKLY
     Route: 042
  2. PACLITAXEL [Concomitant]
     Active Substance: PACLITAXEL
     Indication: Pancreatic carcinoma
     Dosage: 125 MG/M2, CYCLICAL, ON THE FIRST AND EIGHTH DAY TRIWEEKLY
     Route: 042
  3. ALDESLEUKIN [Concomitant]
     Active Substance: ALDESLEUKIN
     Indication: Pancreatic carcinoma
     Dosage: 10000000 U, CYCLICAL, ON DAYS 3-5 AFTER CHEMOTHERAPY TRIWEEKLY
     Route: 058
  4. GRANULOCYTE-MACROPHAGE COLONY-STIMULATING FACTOR [Concomitant]
     Active Substance: GRANULOCYTE-MACROPHAGE COLONY-STIMULATING FACTOR
     Indication: Pancreatic carcinoma
     Dosage: 100 UG, CYCLICAL, ON DAYS 3-5 AFTER CHEMOTHERAPY TRIWEEKLY
     Route: 058

REACTIONS (3)
  - Condition aggravated [Fatal]
  - Jaundice cholestatic [Unknown]
  - Malignant neoplasm progression [Unknown]
